FAERS Safety Report 8458701-4 (Version None)
Quarter: 2012Q2

REPORT INFORMATION
  Report Type: 
  Country: None (occurrence: None)
  Receive Date: 20120622
  Receipt Date: 20120614
  Transmission Date: 20120825
  Serious: No
  Sender: FDA-Public Use
  Company Number: US-PFIZER INC-2012125693

PATIENT
  Sex: Female

DRUGS (1)
  1. SUTENT [Suspect]
     Indication: PANCREATIC NEUROENDOCRINE TUMOUR
     Dosage: 37.5 MG (25MG + 12.5 MG), 1X/DAY
     Route: 048
     Dates: start: 20120504

REACTIONS (1)
  - NO ADVERSE EVENT [None]
